FAERS Safety Report 5527008-7 (Version None)
Quarter: 2007Q4

REPORT INFORMATION
  Report Type: 
  Country: None (occurrence: None)
  Receive Date: 20071127
  Receipt Date: 20071115
  Transmission Date: 20080405
  Serious: Yes (Other)
  Sender: FDA-Public Use
  Company Number: US-PFIZER INC-2007097903

PATIENT
  Sex: Female

DRUGS (2)
  1. CHANTIX [Suspect]
     Indication: SMOKING CESSATION THERAPY
  2. XANAX [Concomitant]

REACTIONS (6)
  - ANGER [None]
  - ANXIETY [None]
  - FEELING JITTERY [None]
  - HOT FLUSH [None]
  - RESTLESSNESS [None]
  - VIOLENCE-RELATED SYMPTOM [None]
